FAERS Safety Report 17812089 (Version 1)
Quarter: 2020Q2

REPORT INFORMATION
  Report Type: Report from Study
  Country: IT (occurrence: IT)
  Receive Date: 20200521
  Receipt Date: 20200521
  Transmission Date: 20200714
  Serious: Yes (Other)
  Sender: FDA-Public Use
  Company Number: NVSC2020IT138897

PATIENT
  Age: 15 Year
  Sex: Male
  Weight: 60.7 kg

DRUGS (2)
  1. DABRAFENIB [Suspect]
     Active Substance: DABRAFENIB
     Indication: GANGLIOGLIOMA
     Dosage: 250 MG
     Route: 048
     Dates: start: 20200414
  2. TRAMETINIB [Suspect]
     Active Substance: TRAMETINIB
     Indication: GANGLIOGLIOMA
     Dosage: 1.5 MG
     Route: 048
     Dates: start: 20200414

REACTIONS (2)
  - Ventricular hypokinesia [Not Recovered/Not Resolved]
  - Skin exfoliation [Recovered/Resolved]

NARRATIVE: CASE EVENT DATE: 20200504
